FAERS Safety Report 17817471 (Version 1)
Quarter: 2020Q2

REPORT INFORMATION
  Report Type: Spontaneous
  Country: US (occurrence: US)
  Receive Date: 20200522
  Receipt Date: 20200522
  Transmission Date: 20200714
  Serious: No
  Sender: FDA-Public Use
  Company Number: US-BAYER-2020-093169

PATIENT
  Age: 45 Year
  Sex: Female

DRUGS (1)
  1. CLIMARA [Suspect]
     Active Substance: ESTRADIOL
     Dosage: UNK
     Route: 062
     Dates: start: 202002

REACTIONS (3)
  - Product adhesion issue [None]
  - Inappropriate schedule of product administration [None]
  - Product administered at inappropriate site [None]

NARRATIVE: CASE EVENT DATE: 2020
